FAERS Safety Report 5796519-1 (Version None)
Quarter: 2008Q3

REPORT INFORMATION
  Report Type: 
  Country: None (occurrence: None)
  Receive Date: 20080701
  Receipt Date: 20080625
  Transmission Date: 20090109
  Serious: Yes (Other)
  Sender: FDA-Public Use
  Company Number: B0527037A

PATIENT

DRUGS (1)
  1. LAPATINIB [Suspect]

REACTIONS (3)
  - ASTHENIA [None]
  - DIPLOPIA [None]
  - PALPITATIONS [None]
